FAERS Safety Report 7077619-5 (Version None)
Quarter: 2010Q4

REPORT INFORMATION
  Report Type: 
  Country: None (occurrence: None)
  Receive Date: 20101101
  Receipt Date: 20101023
  Transmission Date: 20110411
  Serious: Yes (Hospitalization, Disabling)
  Sender: FDA-Public Use
  Company Number: US-PURDUE-USA-2010-0050930

PATIENT
  Sex: Male

DRUGS (1)
  1. OXYCONTIN [Suspect]
     Indication: PAIN
     Dosage: 80 MG, UNK
     Dates: start: 20101006

REACTIONS (6)
  - DRUG INEFFECTIVE [None]
  - GAIT DISTURBANCE [None]
  - HOSPITALISATION [None]
  - PAIN [None]
  - VISUAL IMPAIRMENT [None]
  - VOMITING [None]
